FAERS Safety Report 9299797 (Version 1)
Quarter: 2012Q4

REPORT INFORMATION
  Report Type: Spontaneous
  Country: US (occurrence: None)
  Receive Date: 20121116
  Receipt Date: 20121116
  Transmission Date: 20130627
  Serious: Yes (Hospitalization)
  Sender: FDA-Public Use
  Company Number: UTC-024094

PATIENT
  Age: 61 Year
  Sex: Male

DRUGS (2)
  1. TYVASO (6 MICROGRAM, AEROSOL FOR INHALATION)(TREPROSTINIL SODIUM) [Suspect]
     Indication: CHRONIC PULMONARY HEART DISEASE
     Dosage: (4 IN 1 D)
     Route: 055
     Dates: start: 20121004, end: 20121005
  2. VIAGRA (SILDENAFIL)(50 MILLIGRAM, TABLET) [Concomitant]

REACTIONS (3)
  - Swelling [None]
  - Paraesthesia [None]
  - Muscle tightness [None]
